FAERS Safety Report 10133831 (Version 1)
Quarter: 2014Q2

REPORT INFORMATION
  Report Type: Spontaneous
  Country: FR (occurrence: FR)
  Receive Date: 20140428
  Receipt Date: 20140428
  Transmission Date: 20141212
  Serious: Yes (Disabling)
  Sender: FDA-Public Use
  Company Number: FR-MYLANLABS-2014S1008683

PATIENT
  Sex: Female

DRUGS (3)
  1. CIPROFLOXACINE [Suspect]
     Indication: URINARY TRACT INFECTION
     Dates: start: 201401
  2. GLIVEC [Suspect]
     Indication: CHRONIC LEUKAEMIA
  3. NO DRUG NAME [Concomitant]

REACTIONS (4)
  - Malaise [Unknown]
  - Feeling drunk [Unknown]
  - Abdominal pain [Unknown]
  - Aphagia [Unknown]
